FAERS Safety Report 5710178-5 (Version None)
Quarter: 2008Q2

REPORT INFORMATION
  Report Type: 
  Country: None (occurrence: None)
  Receive Date: 20080418
  Receipt Date: 20080102
  Transmission Date: 20081010
  Serious: No
  Sender: FDA-Public Use
  Company Number: US-ASTRAZENECA-2008UW00045

PATIENT
  Sex: Male

DRUGS (4)
  1. TOPROL-XL [Suspect]
     Route: 048
  2. HYTRIN [Concomitant]
  3. PROCARDIA [Concomitant]
  4. ALTACE [Concomitant]

REACTIONS (7)
  - ASTHENIA [None]
  - BLOOD CHOLESTEROL [None]
  - BLOOD PRESSURE [None]
  - CARDIAC DISORDER [None]
  - MOBILITY DECREASED [None]
  - RESPIRATORY DISORDER [None]
  - WEIGHT [None]
